FAERS Safety Report 8153859-9 (Version None)
Quarter: 2012Q1

REPORT INFORMATION
  Report Type: 
  Country: None (occurrence: None)
  Receive Date: 20120221
  Receipt Date: 20120210
  Transmission Date: 20120608
  Serious: Yes (Hospitalization, Other)
  Sender: FDA-Public Use
  Company Number: CA-ELI_LILLY_AND_COMPANY-CA201202003569

PATIENT
  Age: 96 Year
  Sex: Female

DRUGS (16)
  1. NORVASC [Concomitant]
  2. OSCAL                              /00751519/ [Concomitant]
  3. COENZYME [Concomitant]
  4. PRAVACHOL [Concomitant]
  5. ASPIRIN [Concomitant]
  6. PREMARIN [Concomitant]
  7. POTASSIUM CHLORIDE [Concomitant]
  8. REMERON [Concomitant]
  9. SENOKOT [Concomitant]
  10. TYLENOL (CAPLET) [Concomitant]
  11. FORTEO [Suspect]
     Indication: OSTEOPOROSIS
     Dosage: 20 UG, QD
     Route: 058
     Dates: start: 20110506
  12. SYNTHROID [Concomitant]
  13. ACCUPRIL [Concomitant]
  14. TEMAZEPAM [Concomitant]
  15. CHLORTHALIDONE [Concomitant]
  16. COLACE [Concomitant]

REACTIONS (2)
  - UPPER LIMB FRACTURE [None]
  - FALL [None]
